FAERS Safety Report 9803236 (Version 4)
Quarter: 2014Q1

REPORT INFORMATION
  Report Type: Spontaneous
  Country: IE (occurrence: IE)
  Receive Date: 20140108
  Receipt Date: 20140303
  Transmission Date: 20141002
  Serious: Yes (Hospitalization, Other)
  Sender: FDA-Public Use
  Company Number: PHHY2014IE001386

PATIENT
  Age: 29 Year
  Sex: Female

DRUGS (5)
  1. GILENYA [Suspect]
     Indication: MULTIPLE SCLEROSIS
     Dosage: 0.5 MG, QD
     Route: 048
     Dates: start: 20131216, end: 20140103
  2. VENLAFAXIN [Concomitant]
     Indication: DEPRESSION
     Dosage: 150 MG, PRN
     Route: 048
     Dates: start: 201312
  3. OLANZAPINE [Concomitant]
     Dosage: 20 MG, PRN
  4. XANAX [Concomitant]
     Indication: ANXIETY
     Dosage: 0.5 MG, BID
     Dates: start: 20140108
  5. PARADOL//PARACETAMOL [Concomitant]
     Dosage: 1 G, TID

REACTIONS (6)
  - Psychotic disorder [Unknown]
  - Delusion [Recovered/Resolved]
  - Hallucination, visual [Recovered/Resolved]
  - Cognitive disorder [Recovered/Resolved]
  - Blood cholesterol increased [Unknown]
  - Lymphocyte count decreased [Unknown]
